FAERS Safety Report 14763664 (Version 3)
Quarter: 2019Q1

REPORT INFORMATION
  Report Type: Report from Study
  Country: AU (occurrence: AU)
  Receive Date: 20180416
  Receipt Date: 20190111
  Transmission Date: 20190417
  Serious: Yes (Hospitalization)
  Sender: FDA-Public Use
  Company Number: AU-TOLMAR, INC.-2018AU003942

PATIENT

DRUGS (11)
  1. ELIGARD [Suspect]
     Active Substance: LEUPROLIDE ACETATE
     Indication: PROSTATE CANCER
     Dosage: 22.5 MG, Q3MONTHS
     Route: 058
     Dates: start: 20171010, end: 20180323
  2. DURIDE                             /07346401/ [Suspect]
     Active Substance: ISOSORBIDE MONONITRATE
     Indication: CARDIOVASCULAR EVENT PROPHYLAXIS
     Dosage: 3 MG, DAILY
     Route: 048
     Dates: start: 20160301, end: 20180330
  3. DURIDE                             /07346401/ [Suspect]
     Active Substance: ISOSORBIDE MONONITRATE
     Dosage: UNK
     Route: 065
     Dates: start: 20180517
  4. ZANIDIP [Suspect]
     Active Substance: LERCANIDIPINE HYDROCHLORIDE
     Dosage: UNK
     Route: 065
     Dates: start: 20180517
  5. ENZALUTAMIDE [Suspect]
     Active Substance: ENZALUTAMIDE
     Indication: PROSTATE CANCER
     Dosage: 160 MG, (4 DF) DAILY
     Route: 048
     Dates: start: 20171010, end: 20180330
  6. NICORANDIL [Suspect]
     Active Substance: NICORANDIL
     Dosage: UNK
     Route: 065
     Dates: start: 20180517
  7. OLMETEC [Concomitant]
     Active Substance: OLMESARTAN MEDOXOMIL
     Indication: HYPERTENSION
     Dosage: UNK
     Dates: start: 20140101
  8. CARTIA                             /00002701/ [Concomitant]
     Active Substance: ASPIRIN
     Indication: ANTICOAGULANT THERAPY
     Dosage: UNK
     Dates: start: 20140101
  9. NICORANDIL [Suspect]
     Active Substance: NICORANDIL
     Indication: PAIN PROPHYLAXIS
     Dosage: 5 MG, BID
     Route: 048
     Dates: start: 20160301, end: 20180330
  10. LIPITOR [Concomitant]
     Active Substance: ATORVASTATIN CALCIUM
     Indication: HYPERCHOLESTEROLAEMIA
     Dosage: UNK
     Dates: start: 19970101
  11. ZANIDIP [Suspect]
     Active Substance: LERCANIDIPINE HYDROCHLORIDE
     Indication: HYPERTENSION
     Dosage: 20 MG, DAILY
     Route: 048
     Dates: start: 20140101, end: 20180330

REACTIONS (1)
  - Syncope [Recovered/Resolved]

NARRATIVE: CASE EVENT DATE: 20180330
